FAERS Safety Report 16657114 (Version 1)
Quarter: 2019Q3

REPORT INFORMATION
  Report Type: Spontaneous
  Country: CN (occurrence: CN)
  Receive Date: 20190801
  Receipt Date: 20190801
  Transmission Date: 20191004
  Serious: Yes (Hospitalization)
  Sender: FDA-Public Use
  Company Number: CN-PFIZER INC-2019326677

PATIENT
  Age: 50 Year
  Sex: Male
  Weight: 50.8 kg

DRUGS (1)
  1. TAZOCIN [Suspect]
     Active Substance: PIPERACILLIN SODIUM\TAZOBACTAM SODIUM
     Indication: AORTIC VALVE INCOMPETENCE
     Dosage: 4.5 G, 3X/DAY
     Route: 041
     Dates: start: 20190717, end: 20190726

REACTIONS (5)
  - Product use in unapproved indication [Unknown]
  - Pyrexia [Recovering/Resolving]
  - C-reactive protein increased [Unknown]
  - Chills [Recovering/Resolving]
  - Off label use [Unknown]

NARRATIVE: CASE EVENT DATE: 201907
